FAERS Safety Report 6750459-X (Version None)
Quarter: 2010Q2

REPORT INFORMATION
  Report Type: 
  Country: None (occurrence: None)
  Receive Date: 20100601
  Receipt Date: 20100519
  Transmission Date: 20101027
  Serious: Yes (Other)
  Sender: FDA-Public Use
  Company Number: US-ELI_LILLY_AND_COMPANY-US201005006122

PATIENT
  Age: 65 Year
  Sex: Female

DRUGS (6)
  1. CYMBALTA [Suspect]
     Indication: DEPRESSION
     Dosage: 60 MG, UNK
  2. SUTENT [Concomitant]
  3. METOPROLOL TARTRATE [Concomitant]
     Dosage: 25 MG, 2/D
  4. LISINOPRIL [Concomitant]
  5. THYROID TAB [Concomitant]
  6. ESTROGEN NOS [Concomitant]

REACTIONS (12)
  - BLINDNESS TRANSIENT [None]
  - DIZZINESS [None]
  - DRUG INEFFECTIVE [None]
  - DRUG WITHDRAWAL SYNDROME [None]
  - FATIGUE [None]
  - FEELING ABNORMAL [None]
  - HAEMORRHAGIC DIATHESIS [None]
  - HYPERTENSION [None]
  - PARAESTHESIA [None]
  - POTENTIATING DRUG INTERACTION [None]
  - SOMNOLENCE [None]
  - TINNITUS [None]
